FAERS Safety Report 6119510-4 (Version None)
Quarter: 2009Q1

REPORT INFORMATION
  Report Type: 
  Country: None (occurrence: None)
  Receive Date: 20090316
  Receipt Date: 20090306
  Transmission Date: 20090719
  Serious: Yes (Death)
  Sender: FDA-Public Use
  Company Number: A0773210A

PATIENT
  Age: 50 Year
  Sex: Male
  Weight: 81.8 kg

DRUGS (5)
  1. AVANDIA [Suspect]
     Indication: DIABETES MELLITUS
     Dosage: 4MG TWICE PER DAY
     Route: 048
     Dates: start: 20020520, end: 20020626
  2. LOVASTATIN [Concomitant]
  3. AMITRIPTYLINE HCL [Concomitant]
  4. LISINOPRIL [Concomitant]
  5. DARVOCET [Concomitant]

REACTIONS (3)
  - ARTERIOSCLEROSIS [None]
  - CARDIAC FAILURE [None]
  - CORONARY ARTERY DISEASE [None]
